FAERS Safety Report 17610471 (Version 5)
Quarter: 2020Q4

REPORT INFORMATION
  Report Type: Spontaneous
  Country: US (occurrence: US)
  Receive Date: 20200401
  Receipt Date: 20201215
  Transmission Date: 20210113
  Serious: No
  Sender: FDA-Public Use
  Company Number: US-PFIZER INC-2020134188

PATIENT
  Age: 69 Year
  Sex: Female

DRUGS (2)
  1. LYRICA [Suspect]
     Active Substance: PREGABALIN
     Dosage: 400 MG, DAILY (200 MILLIGRAMS BOTH MORNING AND NIGHT)
  2. LYRICA [Suspect]
     Active Substance: PREGABALIN
     Dosage: 350 MG, DAILY (200MG IN THE MORNING AND 150MG AT NIGHT)

REACTIONS (3)
  - Intentional product use issue [Unknown]
  - Condition aggravated [Unknown]
  - Essential tremor [Unknown]
